FAERS Safety Report 25871578 (Version 2)
Quarter: 2025Q4

REPORT INFORMATION
  Report Type: Spontaneous
  Country: US (occurrence: US)
  Receive Date: 20251001
  Receipt Date: 20251107
  Transmission Date: 20260118
  Serious: No
  Sender: KALEO, INC.
  Company Number: US-KALEO, INC.-2025KL000016

PATIENT

DRUGS (2)
  1. AUVI-Q [Suspect]
     Active Substance: EPINEPHRINE
     Indication: Accidental exposure to product
     Dosage: 0.3 MILLIGRAM, SINGLE
     Route: 059
     Dates: start: 20250805, end: 20250805
  2. AUVI-Q [Suspect]
     Active Substance: EPINEPHRINE

REACTIONS (5)
  - Heart rate increased [Unknown]
  - Injection site discolouration [Unknown]
  - Swelling [Unknown]
  - Device audio issue [Unknown]
  - Accidental exposure to product [Unknown]

NARRATIVE: CASE EVENT DATE: 20250805
